FAERS Safety Report 14280203 (Version 1)
Quarter: 2017Q4

REPORT INFORMATION
  Report Type: Spontaneous
  Country: AU (occurrence: AU)
  Receive Date: 20171212
  Receipt Date: 20171212
  Transmission Date: 20180321
  Serious: Yes (Disabling)
  Sender: FDA-Public Use
  Company Number: None

PATIENT
  Sex: Female
  Weight: 57 kg

DRUGS (4)
  1. CALCIUM AND VITAMIN D [Concomitant]
     Active Substance: CALCIUM\VITAMIN D
  2. ELOCON [Suspect]
     Active Substance: MOMETASONE FUROATE
     Indication: ECZEMA
     Route: 061
  3. FISH OIL [Concomitant]
     Active Substance: FISH OIL
  4. VITAMIN B [Concomitant]
     Active Substance: VITAMIN B

REACTIONS (8)
  - Dermatitis [None]
  - Alopecia [None]
  - Pruritus [None]
  - Vision blurred [None]
  - Skin exfoliation [None]
  - Neuralgia [None]
  - Rash [None]
  - Madarosis [None]

NARRATIVE: CASE EVENT DATE: 20170803
